FAERS Safety Report 5117962-X (Version None)
Quarter: 2006Q3

REPORT INFORMATION
  Report Type: 
  Country: None (occurrence: None)
  Receive Date: 20060925
  Receipt Date: 20060911
  Transmission Date: 20061208
  Serious: Yes (Death, Hospitalization, Congenital Anomaly, Other)
  Sender: FDA-Public Use
  Company Number: 2006SP001282

PATIENT
  Sex: Male

DRUGS (1)
  1. INTRON A [Suspect]
     Indication: NEOPLASM MALIGNANT
     Dosage: SEE IMAGE
     Dates: start: 20050501, end: 20051001

REACTIONS (16)
  - ATRIOVENTRICULAR BLOCK FIRST DEGREE [None]
  - BRADYCARDIA [None]
  - CARDIAC FAILURE [None]
  - CARDIO-RESPIRATORY ARREST NEONATAL [None]
  - CONGENITAL AORTIC STENOSIS [None]
  - CONGENITAL AORTIC VALVE INCOMPETENCE [None]
  - CONGENITAL PULMONARY VALVE DISORDER [None]
  - DRUG EXPOSURE DURING PREGNANCY [None]
  - HEART DISEASE CONGENITAL [None]
  - HYPOPLASTIC LEFT HEART SYNDROME [None]
  - ILEAL ATRESIA [None]
  - INTESTINAL ANASTOMOSIS [None]
  - PATENT DUCTUS ARTERIOSUS [None]
  - PERSISTENT LEFT SUPERIOR VENA CAVA [None]
  - SITUS AMBIGUOUS [None]
  - SITUS INVERSUS [None]
